FAERS Safety Report 9843948 (Version 1)
Quarter: 2013Q4

REPORT INFORMATION
  Report Type: Spontaneous
  Country: US (occurrence: None)
  Receive Date: 20131223
  Receipt Date: 20131223
  Transmission Date: 20140711
  Serious: No
  Sender: FDA-Public Use
  Company Number: 1000049710

PATIENT
  Age: 87 Year
  Sex: Female

DRUGS (12)
  1. LINZESS (LINACLOTIDE) (290 MICROGRAM, CAPSULES) [Suspect]
     Indication: CONSTIPATION
     Dosage: 290MCG (290 MCG, 1 IN 1 D), ORAL
     Route: 048
     Dates: start: 20131003
  2. VICODIN (VICODIN) (VICODIN) [Concomitant]
  3. FIORICET (AXOTAL) (AXOTAL) [Concomitant]
  4. SYNTHROID (LEVOTHYROXINE SODIUM) (LEVOTHYROXINE SODIUM) [Concomitant]
  5. BENICAR (OLMESARTAN MEDOXOMIL) (OLMESARTAN MEDOXOMIL) [Concomitant]
  6. ASPIRIN (ACETYLSALICYLIC ACID) (ACETYLSALICYLIC ACID) [Concomitant]
  7. TRAVATAN (TRAVOPROST) (TRAVOPROST) [Concomitant]
  8. TIMOLOL (TIMOLOL) (TIMOLOL) [Concomitant]
  9. ZOLAFREN (OLANZAPINE) (OLANZAPINE) [Concomitant]
  10. ZOLPIDEM (ZOLPIDEM) (ZOLPIDEM) [Concomitant]
  11. DICLOFENAC (DICLOFENAC) (DICLOFENAC) [Concomitant]
  12. SIMVASTATIN (SIMVASTATIN) (SIMVASTATIN) [Concomitant]

REACTIONS (1)
  - Faeces discoloured [None]
